FAERS Safety Report 6200195-3 (Version None)
Quarter: 2009Q2

REPORT INFORMATION
  Report Type: 
  Country: None (occurrence: None)
  Receive Date: 20090522
  Receipt Date: 20090511
  Transmission Date: 20091009
  Serious: Yes (Hospitalization, Other)
  Sender: FDA-Public Use
  Company Number: JP-PFIZER INC-2009196515

PATIENT
  Age: 19 Year

DRUGS (5)
  1. PREDNISOLONE AND PREDNISOLONE STEAGLATE [Suspect]
     Indication: POLYCHONDRITIS
     Dosage: 20 MG, 1X/DAY
  2. METHYLPREDNISOLONE SODIUM SUCCINATE [Suspect]
     Indication: LUNG DISORDER
     Route: 042
  3. HYDROCORTISONE [Suspect]
  4. CYCLOSPORINE [Suspect]
     Indication: POLYCHONDRITIS
     Dosage: 50 MG, 1X/DAY
  5. BECLOMETASONE DIPROPIONATE [Suspect]
     Indication: POLYCHONDRITIS
     Dosage: 800 UG, 1X/DAY
     Dates: start: 19970101

REACTIONS (6)
  - CHOLECYSTITIS CHRONIC [None]
  - DEPRESSION [None]
  - DIABETES MELLITUS [None]
  - MUSCULAR WEAKNESS [None]
  - OSTEOPOROSIS [None]
  - UPPER AIRWAY OBSTRUCTION [None]
